FAERS Safety Report 9510995 (Version 1)
Quarter: 2013Q1

REPORT INFORMATION
  Report Type: Spontaneous
  Country: US (occurrence: None)
  Receive Date: 20130305
  Receipt Date: 20130305
  Transmission Date: 20140127
  Serious: Yes (Hospitalization)
  Sender: FDA-Public Use
  Company Number: 163-21880-12021343

PATIENT
  Age: 40 Year
  Sex: Male

DRUGS (7)
  1. REVLIMID [Suspect]
     Indication: PLASMA CELL MYELOMA
     Dosage: 25 MG, DAILY X 21D/28D, PO
     Route: 048
     Dates: start: 201108, end: 201109
  2. STEROIDS [Suspect]
     Dosage: HIGH-DOSE, UNK
  3. DEXAMETHASONE (DEXAMETHASONE) (UNKNOWN) [Concomitant]
  4. MORPHINE (MORPHINE) (UNKNOWN) (MORPHINE) [Concomitant]
  5. ZOLPIDEM (ZOLPIDEM) (UNKNOWN) (ZOLPIDEM) [Concomitant]
  6. OMEPRAZOLE (OMEPRAZOLE) (UNKNOWN) [Concomitant]
  7. ALPRAZOLAM (ALPRAZOLAM) (UNKNOWN) (ALPRAZOLAM) [Concomitant]

REACTIONS (2)
  - Supraventricular tachycardia [None]
  - Syncope [None]
